FAERS Safety Report 18766863 (Version 1)
Quarter: 2021Q1

REPORT INFORMATION
  Report Type: Spontaneous
  Country: US (occurrence: US)
  Receive Date: 20210120
  Receipt Date: 20210120
  Transmission Date: 20210419
  Serious: Yes (Hospitalization)
  Sender: FDA-Public Use
  Company Number: None

PATIENT
  Age: 72 Year
  Sex: Female
  Weight: 57.6 kg

DRUGS (7)
  1. MESALAMINE SUPPOSITORIES [Concomitant]
     Active Substance: MESALAMINE
  2. MESALAMINE TABS [Concomitant]
  3. MESALAMINE ENEMAS [Concomitant]
  4. MULTI [Concomitant]
  5. PROLIA [Suspect]
     Active Substance: DENOSUMAB
     Indication: OSTEOPOROSIS
     Dosage: ?          OTHER FREQUENCY:2 TIMES PER YEAR;?
     Route: 058
  6. VITAMIN C [Concomitant]
     Active Substance: ASCORBIC ACID
  7. CALCIUM W / D [Concomitant]

REACTIONS (3)
  - Femur fracture [None]
  - Hip fracture [None]
  - Fall [None]

NARRATIVE: CASE EVENT DATE: 20200317
